FAERS Safety Report 8264251-0 (Version None)
Quarter: 2012Q2

REPORT INFORMATION
  Report Type: 
  Country: None (occurrence: None)
  Receive Date: 20120403
  Receipt Date: 20120326
  Transmission Date: 20120825
  Serious: Yes (Hospitalization, Other)
  Sender: FDA-Public Use
  Company Number: 131823

PATIENT
  Age: 7 Year
  Sex: Male

DRUGS (1)
  1. DILTIAZEM HCL [Suspect]
     Indication: PRODUCT USED FOR UNKNOWN INDICATION

REACTIONS (11)
  - HYPERGLYCAEMIA [None]
  - MEDICATION ERROR [None]
  - RENAL FAILURE ACUTE [None]
  - HYPOTENSION [None]
  - VOMITING [None]
  - CONVULSION [None]
  - MENTAL STATUS CHANGES [None]
  - MULTI-ORGAN DISORDER [None]
  - OVERDOSE [None]
  - BRADYCARDIA [None]
  - METABOLIC ACIDOSIS [None]
